FAERS Safety Report 6701114-3 (Version None)
Quarter: 2010Q2

REPORT INFORMATION
  Report Type: 
  Country: None (occurrence: None)
  Receive Date: 20100428
  Receipt Date: 20100428
  Transmission Date: 20101027
  Serious: Yes (Other)
  Sender: FDA-Public Use
  Company Number: None

PATIENT
  Age: 42 Year
  Sex: Male
  Weight: 86.1834 kg

DRUGS (2)
  1. ZONEGRAN [Suspect]
     Indication: CONVULSION
     Dosage: 300MG ONCE A DAY PO
     Route: 048
     Dates: start: 20100129, end: 20100322
  2. TRILEPTAL [Concomitant]

REACTIONS (1)
  - ALOPECIA [None]
